FAERS Safety Report 7233187-6 (Version None)
Quarter: 2011Q1

REPORT INFORMATION
  Report Type: 
  Country: None (occurrence: None)
  Receive Date: 20110119
  Receipt Date: 20110115
  Transmission Date: 20110831
  Serious: Yes (Other)
  Sender: FDA-Public Use
  Company Number: A0876615A

PATIENT
  Sex: Male

DRUGS (2)
  1. AVODART [Suspect]
     Indication: BENIGN PROSTATIC HYPERPLASIA
     Dosage: .5MG UNKNOWN
     Route: 065
     Dates: start: 20090701, end: 20100607
  2. TAMSULOSIN [Suspect]
     Indication: BENIGN PROSTATIC HYPERPLASIA
     Route: 065
     Dates: start: 20090701

REACTIONS (19)
  - METASTASES TO LYMPH NODES [None]
  - RADICAL MASTECTOMY [None]
  - NIPPLE PAIN [None]
  - URINE FLOW DECREASED [None]
  - DYSURIA [None]
  - LYMPHOMA [None]
  - GYNAECOMASTIA [None]
  - LIBIDO DECREASED [None]
  - DRUG INEFFECTIVE [None]
  - ERECTILE DYSFUNCTION [None]
  - DEPRESSION [None]
  - HAEMATURIA [None]
  - BREAST CANCER [None]
  - BREAST CANCER MALE [None]
  - NOCTURIA [None]
  - LYMPHADENECTOMY [None]
  - PROSTATITIS [None]
  - TRANSURETHRAL PROSTATECTOMY [None]
  - NIPPLE DISORDER [None]
